FAERS Safety Report 12417173 (Version 1)
Quarter: 2016Q2

REPORT INFORMATION
  Report Type: Report from Study
  Country: GB (occurrence: GB)
  Receive Date: 20160530
  Receipt Date: 20160530
  Transmission Date: 20160815
  Serious: Yes (Other)
  Sender: FDA-Public Use
  Company Number: GB-JNJFOC-20140817047

PATIENT
  Age: 46 Year
  Sex: Female

DRUGS (1)
  1. SIMPONI [Suspect]
     Active Substance: GOLIMUMAB
     Indication: PRODUCT USED FOR UNKNOWN INDICATION
     Route: 058

REACTIONS (6)
  - Tooth infection [Unknown]
  - Nausea [Unknown]
  - Chest discomfort [Unknown]
  - Productive cough [Unknown]
  - Lower respiratory tract infection [Unknown]
  - Chills [Unknown]

NARRATIVE: CASE EVENT DATE: 20140804
